FAERS Safety Report 6859126-5 (Version None)
Quarter: 2010Q3

REPORT INFORMATION
  Report Type: 
  Country: None (occurrence: None)
  Receive Date: 20100719
  Receipt Date: 20080219
  Transmission Date: 20110219
  Serious: No
  Sender: FDA-Public Use
  Company Number: US-PFIZER INC-2008017578

PATIENT

DRUGS (1)
  1. CHANTIX [Suspect]
     Dates: start: 20070701, end: 20070901

REACTIONS (3)
  - HYPOAESTHESIA [None]
  - HYPOGEUSIA [None]
  - STOMATITIS [None]
